FAERS Safety Report 17460127 (Version 3)
Quarter: 2020Q2

REPORT INFORMATION
  Report Type: Spontaneous
  Country: US (occurrence: US)
  Receive Date: 20200226
  Receipt Date: 20200403
  Transmission Date: 20200713
  Serious: No
  Sender: FDA-Public Use
  Company Number: US-PFIZER INC-2020082695

PATIENT
  Age: 55 Year
  Sex: Male
  Weight: 95.25 kg

DRUGS (1)
  1. NICOTINE. [Suspect]
     Active Substance: NICOTINE
     Dosage: UNK

REACTIONS (1)
  - Drug ineffective [Unknown]
